FAERS Safety Report 23663481 (Version 1)
Quarter: 2024Q1

REPORT INFORMATION
  Report Type: Spontaneous
  Country: US (occurrence: US)
  Receive Date: 20240322
  Receipt Date: 20240322
  Transmission Date: 20240409
  Serious: No
  Sender: FDA-Public Use
  Company Number: US-SA-SAC20240319000334

PATIENT
  Age: 18 Year
  Sex: Female

DRUGS (1)
  1. TZIELD [Suspect]
     Active Substance: TEPLIZUMAB-MZWV
     Dosage: UNK
     Route: 065
     Dates: start: 202312

REACTIONS (7)
  - Cough [Unknown]
  - Feeding disorder [Unknown]
  - Pyrexia [Unknown]
  - Nausea [Unknown]
  - Rash [Unknown]
  - Urticaria [Unknown]
  - Headache [Unknown]
